FAERS Safety Report 7374113-9 (Version None)
Quarter: 2011Q1

REPORT INFORMATION
  Report Type: 
  Country: None (occurrence: None)
  Receive Date: 20110325
  Receipt Date: 20110225
  Transmission Date: 20110831
  Serious: No
  Sender: FDA-Public Use
  Company Number: US-B.I. PHARMACEUTICALS,INC./RIDGEFIELD-2011-BP-06939BP

PATIENT
  Age: 76 Year
  Sex: Male

DRUGS (7)
  1. LISINOPRIL [Concomitant]
     Indication: HYPERTENSION
     Dosage: 20 MG
     Route: 048
     Dates: start: 20101101
  2. COQ10 [Concomitant]
     Indication: CARDIAC DISORDER
     Dosage: 200 MG
     Route: 048
  3. PRADAXA [Suspect]
     Indication: ATRIAL FIBRILLATION
     Dosage: 300 MG
     Route: 048
     Dates: start: 20101201, end: 20110225
  4. GARLIC [Concomitant]
     Indication: PROPHYLAXIS
     Route: 048
  5. VITAMIN D [Concomitant]
     Indication: PROPHYLAXIS
     Route: 048
  6. FISH OIL [Concomitant]
     Indication: PROPHYLAXIS
     Route: 048
  7. ASCORBIC ACID [Concomitant]
     Indication: PROPHYLAXIS
     Route: 048

REACTIONS (3)
  - EPISTAXIS [None]
  - ENERGY INCREASED [None]
  - HAEMATEMESIS [None]
